FAERS Safety Report 12190314 (Version 1)
Quarter: 2016Q1

REPORT INFORMATION
  Report Type: Spontaneous
  Country: US (occurrence: US)
  Receive Date: 20160318
  Receipt Date: 20160318
  Transmission Date: 20160526
  Serious: Yes (Other)
  Sender: FDA-Public Use
  Company Number: US-EISAI MEDICAL RESEARCH-EC-2016-015202

PATIENT
  Sex: Male

DRUGS (2)
  1. FYCOMPA [Suspect]
     Active Substance: PERAMPANEL
     Indication: PRODUCT USED FOR UNKNOWN INDICATION
     Route: 048
     Dates: end: 201603
  2. FYCOMPA [Suspect]
     Active Substance: PERAMPANEL
     Route: 048
     Dates: start: 201603

REACTIONS (1)
  - Homicidal ideation [Unknown]

NARRATIVE: CASE EVENT DATE: 201603
